FAERS Safety Report 8360966-4 (Version None)
Quarter: 2012Q2

REPORT INFORMATION
  Report Type: 
  Country: None (occurrence: None)
  Receive Date: 20120515
  Receipt Date: 20120504
  Transmission Date: 20120825
  Serious: Yes (Death)
  Sender: FDA-Public Use
  Company Number: US-CELGENEUS-163-21880-12050175

PATIENT
  Sex: Female

DRUGS (8)
  1. PEPCID [Concomitant]
     Dosage: 40 MILLIGRAM
     Route: 048
  2. COUMADIN [Concomitant]
     Dosage: 5 MILLIGRAM
     Route: 048
  3. PLAVIX [Concomitant]
     Dosage: 75 MILLIGRAM
     Route: 048
  4. REVLIMID [Suspect]
     Indication: MULTIPLE MYELOMA
     Dosage: 15 MILLIGRAM
     Route: 048
     Dates: start: 20120301
  5. PREDNISONE TAB [Concomitant]
     Dosage: 1 MILLIGRAM
  6. DIGOXIN [Concomitant]
     Dosage: .25 MILLIGRAM
     Route: 048
  7. LEXAPRO [Concomitant]
     Dosage: 5 MILLIGRAM
     Route: 048
  8. SYNTHROID [Concomitant]
     Dosage: 88 MICROGRAM
     Route: 048

REACTIONS (1)
  - DEATH [None]
